FAERS Safety Report 23693752 (Version 3)
Quarter: 2024Q3

REPORT INFORMATION
  Report Type: Report from Study
  Country: JP (occurrence: JP)
  Receive Date: 20240401
  Receipt Date: 20240710
  Transmission Date: 20241017
  Serious: Yes (Death, Life-Threatening, Hospitalization, Other)
  Sender: ABBVIE
  Company Number: JP-TAKEDA-2024TJP004577

PATIENT
  Age: 83 Year
  Sex: Male
  Weight: 54.8 kg

DRUGS (3)
  1. LEUPROLIDE ACETATE [Suspect]
     Active Substance: ISOPROPYL ALCOHOL\LEUPROLIDE ACETATE
     Indication: Bulbospinal muscular atrophy congenital
     Dosage: 11.25 MILLIGRAM, Q3MONTHS
     Route: 058
     Dates: start: 20180216, end: 20230519
  2. METHYLCOBALAMIN [Concomitant]
     Active Substance: METHYLCOBALAMIN
     Indication: Bulbospinal muscular atrophy congenital
     Dosage: 500 MICROGRAM
     Route: 065
  3. METHYLCOBALAMIN [Concomitant]
     Active Substance: METHYLCOBALAMIN
     Indication: Bulbospinal muscular atrophy congenital
     Dosage: 1500 MICROGRAM
     Route: 065
     Dates: end: 20220812

REACTIONS (6)
  - Hepatocellular carcinoma [Fatal]
  - Pneumonia [Recovered/Resolved]
  - Disseminated intravascular coagulation [Recovering/Resolving]
  - Post procedural haemorrhage [Recovering/Resolving]
  - Renal failure [Not Recovered/Not Resolved]
  - Peritonitis [Recovering/Resolving]

NARRATIVE: CASE EVENT DATE: 20230201
